FAERS Safety Report 6190538-1 (Version None)
Quarter: 2009Q2

REPORT INFORMATION
  Report Type: 
  Country: None (occurrence: None)
  Receive Date: 20090514
  Receipt Date: 20090511
  Transmission Date: 20091009
  Serious: Yes (Other)
  Sender: FDA-Public Use
  Company Number: DE-ROXANE LABORATORIES, INC.-2009-RO-00481RO

PATIENT
  Age: 59 Year
  Sex: Male

DRUGS (8)
  1. LAMOTRIGINE [Suspect]
     Indication: EPILEPSY
     Dosage: 300MG
     Dates: start: 19940101
  2. LAMOTRIGINE [Suspect]
     Dosage: 325MG
     Dates: start: 20050501
  3. LAMOTRIGINE [Suspect]
     Dosage: 300MG
     Dates: start: 20060101, end: 20070401
  4. LAMOTRIGINE [Suspect]
     Dosage: 250MG
     Dates: start: 20070401, end: 20071101
  5. LAMOTRIGINE [Suspect]
     Dosage: 200MG
     Dates: start: 20071101
  6. LORAZEPAM [Suspect]
     Indication: HALLUCINATION
  7. VALPROATE SODIUM [Suspect]
     Indication: EPILEPSY
     Dosage: 3300MG
     Dates: start: 20060101
  8. OLANZAPINE [Suspect]
     Indication: HALLUCINATION
     Dosage: 5MG

REACTIONS (7)
  - CEREBELLAR ATROPHY [None]
  - DRUG INEFFECTIVE [None]
  - DYSARTHRIA [None]
  - EXOSTOSIS [None]
  - FALL [None]
  - HALLUCINATION [None]
  - SUBDURAL HAEMATOMA [None]
